FAERS Safety Report 4812290-1 (Version None)
Quarter: 2005Q4

REPORT INFORMATION
  Report Type: 
  Country: None (occurrence: None)
  Receive Date: 20051028
  Receipt Date: 20041004
  Transmission Date: 20060501
  Serious: No
  Sender: FDA-Public Use
  Company Number: US-GLAXOSMITHKLINE-A0528404A

PATIENT
  Age: 39 Year
  Sex: Female

DRUGS (7)
  1. ADVAIR DISKUS 100/50 [Suspect]
     Indication: PNEUMONIA
     Dosage: 1PUFF TWICE PER DAY
     Route: 055
     Dates: start: 20041004
  2. ALBUTEROL SULFATE [Concomitant]
  3. IPRATROPIUM BROMIDE (NEB) [Concomitant]
  4. CIPROFLOXACIN [Concomitant]
  5. ALLEGRA [Concomitant]
  6. UNKNOWN MEDICATION [Concomitant]
  7. TUSSIONEX [Concomitant]

REACTIONS (2)
  - DRUG INEFFECTIVE [None]
  - PHARMACEUTICAL PRODUCT COMPLAINT [None]
